FAERS Safety Report 19879634 (Version 1)
Quarter: 2021Q3

REPORT INFORMATION
  Report Type: Spontaneous
  Country: US (occurrence: US)
  Receive Date: 20210924
  Receipt Date: 20210924
  Transmission Date: 20211014
  Serious: Yes (Other)
  Sender: FDA-Public Use
  Company Number: US-PFIZER INC-2019243034

PATIENT
  Age: 74 Year
  Sex: Female

DRUGS (1)
  1. LYRICA [Suspect]
     Active Substance: PREGABALIN
     Indication: AUTONOMIC NEUROPATHY
     Dosage: 100 MG, ONCE A DAY (1 BEFORE BED) [EVERY NIGHT AT BEDTIME]
     Route: 048

REACTIONS (2)
  - Blood glucose abnormal [Unknown]
  - Off label use [Unknown]
